FAERS Safety Report 9510662 (Version 1)
Quarter: 2013Q3

REPORT INFORMATION
  Report Type: Spontaneous
  Country: US (occurrence: US)
  Receive Date: 20130909
  Receipt Date: 20130909
  Transmission Date: 20140515
  Serious: No
  Sender: FDA-Public Use
  Company Number: US-009507513-1309USA002803

PATIENT
  Sex: Female

DRUGS (6)
  1. EMEND [Suspect]
     Indication: PROPHYLAXIS OF NAUSEA AND VOMITING
     Dosage: 125 MG, ONCE
     Route: 048
     Dates: start: 20130903
  2. EMEND [Suspect]
     Dosage: 80 MG, QD
     Route: 048
     Dates: start: 20130904
  3. ONDANSETRON [Concomitant]
  4. DEXAMETHASONE [Concomitant]
  5. DOXORUBICIN [Concomitant]
  6. TAGAMET [Concomitant]
     Dosage: UNK
     Dates: start: 1993

REACTIONS (6)
  - Angioedema [Unknown]
  - Dysphagia [Unknown]
  - Angioedema [Unknown]
  - Tongue discolouration [Unknown]
  - Pharyngeal erythema [Unknown]
  - Throat lesion [Unknown]
